FAERS Safety Report 6813135-0 (Version None)
Quarter: 2010Q3

REPORT INFORMATION
  Report Type: 
  Country: None (occurrence: None)
  Receive Date: 20100701
  Receipt Date: 20100624
  Transmission Date: 20110219
  Serious: Yes (Hospitalization, Other)
  Sender: FDA-Public Use
  Company Number: BR-PFIZER INC-2010079000

PATIENT
  Age: 17 Year
  Sex: Male
  Weight: 60 kg

DRUGS (2)
  1. GEODON [Suspect]
     Dosage: UNK
     Route: 048
     Dates: start: 20100101, end: 20100617
  2. VITAMIN B COMPLEX CAP [Concomitant]
     Dosage: UNK

REACTIONS (8)
  - ACCIDENTAL EXPOSURE [None]
  - ASTHENIA [None]
  - DIZZINESS [None]
  - FEELING ABNORMAL [None]
  - INSOMNIA [None]
  - LOSS OF CONSCIOUSNESS [None]
  - MUSCULAR WEAKNESS [None]
  - SYNCOPE [None]
